FAERS Safety Report 9982805 (Version 1)
Quarter: 2014Q1

REPORT INFORMATION
  Report Type: Report from Study
  Country: US (occurrence: US)
  Receive Date: 20140307
  Receipt Date: 20140307
  Transmission Date: 20141002
  Serious: No
  Sender: FDA-Public Use
  Company Number: US-ABBVIE-13P-163-1176669-00

PATIENT
  Age: 49 Year
  Sex: Female
  Weight: 89.89 kg

DRUGS (5)
  1. HUMIRA [Suspect]
     Indication: PSORIASIS
     Dates: start: 2012
  2. LANTUS [Concomitant]
     Indication: DIABETES MELLITUS
  3. METFORMIN [Concomitant]
     Indication: DIABETES MELLITUS
  4. UNNAMED MEDICATION [Concomitant]
     Indication: HYPERTENSION
  5. UNNAMED MEDICATION [Concomitant]
     Indication: BLOOD CHOLESTEROL INCREASED

REACTIONS (3)
  - Drug dose omission [Not Recovered/Not Resolved]
  - Psoriasis [Not Recovered/Not Resolved]
  - Incorrect product storage [Unknown]
